FAERS Safety Report 11441050 (Version 1)
Quarter: 2015Q3

REPORT INFORMATION
  Report Type: Spontaneous
  Country: US (occurrence: None)
  Receive Date: 20150831
  Receipt Date: 20150831
  Transmission Date: 20151125
  Serious: No
  Sender: FDA-Public Use
  Company Number: None

PATIENT
  Age: 46 Year
  Sex: Female
  Weight: 77.11 kg

DRUGS (1)
  1. LEXAPRO [Suspect]
     Active Substance: ESCITALOPRAM OXALATE
     Indication: DEPRESSION
     Dosage: TAKEN BY MOUTH
     Dates: start: 20150701, end: 20150827

REACTIONS (6)
  - Fatigue [None]
  - Feeling abnormal [None]
  - Withdrawal syndrome [None]
  - Headache [None]
  - Depression [None]
  - Myalgia [None]

NARRATIVE: CASE EVENT DATE: 20150827
